FAERS Safety Report 13122218 (Version 2)
Quarter: 2017Q1

REPORT INFORMATION
  Report Type: Spontaneous
  Country: US (occurrence: US)
  Receive Date: 20170117
  Receipt Date: 20170323
  Transmission Date: 20170428
  Serious: Yes (Hospitalization)
  Sender: FDA-Public Use
  Company Number: US-JNJFOC-20170112934

PATIENT
  Age: 30 Year
  Sex: Male
  Weight: 68.04 kg

DRUGS (5)
  1. RISPERDAL [Suspect]
     Active Substance: RISPERIDONE
     Indication: SUBSTANCE-INDUCED PSYCHOTIC DISORDER
     Dosage: DOSE WAS REDUCED
     Route: 048
  2. RISPERDAL CONSTA [Suspect]
     Active Substance: RISPERIDONE
     Indication: PRODUCT USED FOR UNKNOWN INDICATION
     Route: 030
     Dates: start: 2008
  3. RISPERDAL [Suspect]
     Active Substance: RISPERIDONE
     Indication: SUBSTANCE-INDUCED PSYCHOTIC DISORDER
     Route: 048
     Dates: start: 2008
  4. RISPERIDONE. [Suspect]
     Active Substance: RISPERIDONE
     Indication: PRODUCT USED FOR UNKNOWN INDICATION
     Route: 065
  5. RISPERIDONE. [Suspect]
     Active Substance: RISPERIDONE
     Indication: PRODUCT USED FOR UNKNOWN INDICATION
     Route: 065

REACTIONS (8)
  - Psychotic disorder [Recovered/Resolved]
  - Abdominal pain upper [Unknown]
  - Inappropriate schedule of drug administration [Unknown]
  - Off label use [Unknown]
  - Hospitalisation [Unknown]
  - Overdose [Unknown]
  - Derealisation [Unknown]
  - Product use issue [Unknown]

NARRATIVE: CASE EVENT DATE: 2008
